FAERS Safety Report 8306521-3 (Version None)
Quarter: 2012Q2

REPORT INFORMATION
  Report Type: 
  Country: None (occurrence: None)
  Receive Date: 20120424
  Receipt Date: 20120412
  Transmission Date: 20120825
  Serious: Yes (Life-Threatening, Hospitalization, Disabling)
  Sender: FDA-Public Use
  Company Number: FR-AMGEN-FRASP2012024210

PATIENT
  Age: 45 Year
  Sex: Male

DRUGS (1)
  1. ENBREL [Suspect]
     Indication: PSORIATIC ARTHROPATHY
     Dosage: 25 MG, ONCE EVERY 4 WEEKS
     Route: 058
     Dates: start: 20070401, end: 20111201

REACTIONS (2)
  - MEDULLOBLASTOMA [None]
  - METASTASES TO CENTRAL NERVOUS SYSTEM [None]
